FAERS Safety Report 7588556-1 (Version None)
Quarter: 2011Q3

REPORT INFORMATION
  Report Type: 
  Country: None (occurrence: None)
  Receive Date: 20110705
  Receipt Date: 20110627
  Transmission Date: 20111222
  Serious: Yes (Death, Life-Threatening, Hospitalization)
  Sender: FDA-Public Use
  Company Number: DE-SANOFI-AVENTIS-2011SA017054

PATIENT
  Age: 90 Year
  Sex: Female
  Weight: 55 kg

DRUGS (10)
  1. BENAZEPRIL HYDROCHLORIDE/HYDROCHLOROTHIAZIDE [Concomitant]
     Route: 065
     Dates: end: 20110101
  2. SIMVASTATIN [Concomitant]
     Route: 048
     Dates: end: 20110101
  3. PROCHLORPERAZINE [Concomitant]
     Route: 048
     Dates: end: 20110101
  4. TILIDINE [Concomitant]
     Route: 048
     Dates: end: 20110101
  5. ACETYLSALICYLIC ACID [Concomitant]
     Route: 048
     Dates: end: 20110101
  6. AMARYL [Concomitant]
     Route: 048
     Dates: end: 20110101
  7. ENOXAPARIN SODIUM [Suspect]
     Route: 058
     Dates: start: 20110126, end: 20110205
  8. BISOPROLOL FUMARATE [Concomitant]
     Route: 048
     Dates: end: 20110101
  9. PANTOPRAZOLE [Concomitant]
     Route: 048
     Dates: end: 20110101
  10. MOVIPREP [Concomitant]
     Route: 048
     Dates: end: 20110101

REACTIONS (5)
  - PNEUMONIA [None]
  - BLISTER [None]
  - HAEMATOMA [None]
  - CONDITION AGGRAVATED [None]
  - SKIN NECROSIS [None]
